FAERS Safety Report 18929922 (Version 2)
Quarter: 2021Q2

REPORT INFORMATION
  Report Type: Spontaneous
  Country: US (occurrence: US)
  Receive Date: 20210223
  Receipt Date: 20210611
  Transmission Date: 20210717
  Serious: No
  Sender: FDA-Public Use
  Company Number: US-PFIZER INC-2021137389

PATIENT
  Age: 56 Year
  Sex: Female

DRUGS (1)
  1. GENOTROPIN MQ [Suspect]
     Active Substance: SOMATROPIN
     Dosage: 0.4 MG, DAILY [0.4 MG 7 DAYS A WEEK]

REACTIONS (4)
  - Product dose omission issue [Unknown]
  - Confusional state [Unknown]
  - Fatigue [Unknown]
  - Intentional product misuse [Unknown]
